FAERS Safety Report 8818345 (Version 1)
Quarter: 2012Q4

REPORT INFORMATION
  Report Type: 
  Country: US (occurrence: US)
  Receive Date: 20121002
  Receipt Date: 20121002
  Transmission Date: 20130627
  Serious: Yes (Other)
  Sender: FDA-Public Use
  Company Number: US-ROXANE LABORATORIES, INC.-2012-RO-01925RO

PATIENT
  Sex: Male

DRUGS (5)
  1. LITHIUM CARBONATE [Suspect]
     Route: 064
  2. LITHIUM CARBONATE [Suspect]
     Route: 063
  3. CALCIUM CARBONATE [Suspect]
  4. BUPROPION [Suspect]
     Route: 064
  5. LEVOTHYROXINE [Suspect]
     Route: 064

REACTIONS (5)
  - Feeding disorder neonatal [Recovered/Resolved]
  - Weight decreased [Recovered/Resolved]
  - Hypotonia [Unknown]
  - Gross motor delay [Unknown]
  - Fine motor delay [Unknown]
